FAERS Safety Report 25659891 (Version 1)
Quarter: 2025Q3

REPORT INFORMATION
  Report Type: Spontaneous
  Country: EU (occurrence: EU)
  Receive Date: 20250808
  Receipt Date: 20250808
  Transmission Date: 20251020
  Serious: Yes (Other)
  Sender: MYLAN
  Company Number: EU-MYLANLABS-2025M1066681

PATIENT
  Age: 70 Year
  Sex: Male

DRUGS (8)
  1. METHOTREXATE [Suspect]
     Active Substance: METHOTREXATE
     Indication: Psoriasis
     Dosage: 15 MILLIGRAM, QW
  2. METHOTREXATE [Suspect]
     Active Substance: METHOTREXATE
     Dosage: 15 MILLIGRAM, QW
  3. METHOTREXATE [Suspect]
     Active Substance: METHOTREXATE
     Dosage: 15 MILLIGRAM, QW
     Route: 058
  4. METHOTREXATE [Suspect]
     Active Substance: METHOTREXATE
     Dosage: 15 MILLIGRAM, QW
     Route: 058
  5. METHOTREXATE [Suspect]
     Active Substance: METHOTREXATE
     Dosage: 12.5 MILLIGRAM, QW
  6. METHOTREXATE [Suspect]
     Active Substance: METHOTREXATE
     Dosage: 12.5 MILLIGRAM, QW
  7. METHOTREXATE [Suspect]
     Active Substance: METHOTREXATE
     Dosage: 12.5 MILLIGRAM, QW
     Route: 058
  8. METHOTREXATE [Suspect]
     Active Substance: METHOTREXATE
     Dosage: 12.5 MILLIGRAM, QW
     Route: 058

REACTIONS (1)
  - Gouty arthritis [Recovering/Resolving]
